FAERS Safety Report 11679629 (Version 3)
Quarter: 2015Q4

REPORT INFORMATION
  Report Type: Spontaneous
  Country: US (occurrence: US)
  Receive Date: 20151027
  Receipt Date: 20151110
  Transmission Date: 20160304
  Serious: No
  Sender: FDA-Public Use
  Company Number: US-ELI_LILLY_AND_COMPANY-US201007006774

PATIENT
  Age: 66 Year
  Sex: Female

DRUGS (31)
  1. FORTEO [Suspect]
     Active Substance: TERIPARATIDE
     Dosage: 20 UG, QD
     Route: 058
  2. ZYPREXA [Concomitant]
     Active Substance: OLANZAPINE
     Indication: MAJOR DEPRESSION
     Dosage: 10 MG, QD
  3. CYMBALTA [Concomitant]
     Active Substance: DULOXETINE HYDROCHLORIDE
     Indication: DEPRESSION
     Dosage: 60 MG, BID
  4. OPTIVIT [Concomitant]
     Active Substance: MINERALS\VITAMINS
  5. DARVOCET [Concomitant]
     Active Substance: ACETAMINOPHEN\PROPOXYPHENE HYDROCHLORIDE
  6. FORTEO [Suspect]
     Active Substance: TERIPARATIDE
     Dosage: 20 UG, QD
     Route: 058
  7. FORTEO [Suspect]
     Active Substance: TERIPARATIDE
     Dosage: 20 UG, QD
     Route: 058
  8. ZYMAR [Concomitant]
     Active Substance: GATIFLOXACIN
  9. TIMOLOL. [Concomitant]
     Active Substance: TIMOLOL
  10. LORAZEPAM. [Concomitant]
     Active Substance: LORAZEPAM
  11. ELAVIL [Concomitant]
     Active Substance: AMITRIPTYLINE HYDROCHLORIDE
  12. FORTEO [Suspect]
     Active Substance: TERIPARATIDE
     Dosage: 20 UG, QD
     Route: 058
  13. FORTEO [Suspect]
     Active Substance: TERIPARATIDE
     Dosage: 20 UG, QD
     Route: 058
  14. FORTEO [Suspect]
     Active Substance: TERIPARATIDE
     Dosage: 20 UG, QD
     Route: 058
  15. FLUOXETINE [Concomitant]
     Active Substance: FLUOXETINE HYDROCHLORIDE
  16. PRED FORTE [Concomitant]
     Active Substance: PREDNISOLONE ACETATE
  17. SYNTHROID [Concomitant]
     Active Substance: LEVOTHYROXINE SODIUM
  18. VITAMIN D [Concomitant]
     Active Substance: CHOLECALCIFEROL
     Dosage: 1000 MG, QD
  19. SIMVASTATIN. [Concomitant]
     Active Substance: SIMVASTATIN
  20. TRAZODONE [Concomitant]
     Active Substance: TRAZODONE HYDROCHLORIDE
  21. LINODIL [Concomitant]
  22. FORTEO [Suspect]
     Active Substance: TERIPARATIDE
     Dosage: 20 UG, QD
     Route: 058
  23. REQUIP [Concomitant]
     Active Substance: ROPINIROLE HYDROCHLORIDE
  24. FORTEO [Suspect]
     Active Substance: TERIPARATIDE
     Dosage: 20 UG, QD
     Route: 058
  25. KETOROLAC [Concomitant]
     Active Substance: KETOROLAC\KETOROLAC TROMETHAMINE
  26. CALCIUM [Concomitant]
     Active Substance: CALCIUM
     Dosage: 599 MG, QD
  27. FORTEO [Suspect]
     Active Substance: TERIPARATIDE
     Indication: OSTEOPOROSIS
     Dosage: 20 UG, QD
     Route: 058
     Dates: start: 20100423
  28. NAPROXEN. [Concomitant]
     Active Substance: NAPROXEN
  29. BENTYL [Concomitant]
     Active Substance: DICYCLOMINE HYDROCHLORIDE
  30. VITAMIN D [Concomitant]
     Active Substance: CHOLECALCIFEROL
     Dosage: 2000 MG, QD
  31. CALCIUM [Concomitant]
     Active Substance: CALCIUM
     Dosage: 1000 MG, QD

REACTIONS (35)
  - Spinal pain [Not Recovered/Not Resolved]
  - Limb injury [Unknown]
  - Macule [Unknown]
  - Dizziness [Unknown]
  - Headache [Not Recovered/Not Resolved]
  - Muscle spasms [Unknown]
  - Blood calcium increased [Unknown]
  - Cataract [Recovered/Resolved]
  - Pain in extremity [Not Recovered/Not Resolved]
  - Head injury [Unknown]
  - Fall [Unknown]
  - Astigmatism [Recovering/Resolving]
  - Joint injury [Unknown]
  - Contusion [Unknown]
  - Injection site pain [Unknown]
  - Medication error [Unknown]
  - Blindness [Recovered/Resolved]
  - Epistaxis [Unknown]
  - Night blindness [Unknown]
  - Gait disturbance [Unknown]
  - Musculoskeletal pain [Unknown]
  - Groin pain [Unknown]
  - Injection site urticaria [Unknown]
  - Arthralgia [Not Recovered/Not Resolved]
  - Injection site bruising [Unknown]
  - Balance disorder [Unknown]
  - Intervertebral disc protrusion [Recovering/Resolving]
  - Musculoskeletal discomfort [Unknown]
  - Pain [Not Recovered/Not Resolved]
  - Accidental overdose [Unknown]
  - Eye degenerative disorder [Unknown]
  - Eye operation [Recovering/Resolving]
  - Spinal disorder [Unknown]
  - Pain in extremity [Unknown]
  - Bone pain [Unknown]

NARRATIVE: CASE EVENT DATE: 20100619
